FAERS Safety Report 25482737 (Version 1)
Quarter: 2025Q2

REPORT INFORMATION
  Report Type: Spontaneous
  Country: FR (occurrence: FR)
  Receive Date: 20250626
  Receipt Date: 20250626
  Transmission Date: 20250716
  Serious: Yes (Hospitalization, Other)
  Sender: AUROBINDO
  Company Number: FR-AFSSAPS-LL2025001079

PATIENT
  Age: 53 Year
  Sex: Male

DRUGS (2)
  1. METHOCARBAMOL [Suspect]
     Active Substance: METHOCARBAMOL
     Indication: Pain
     Route: 048
     Dates: start: 20250515
  2. NABUMETONE [Suspect]
     Active Substance: NABUMETONE
     Indication: Pain
     Route: 048
     Dates: start: 20250515

REACTIONS (2)
  - Hepatitis acute [Not Recovered/Not Resolved]
  - Jaundice [Not Recovered/Not Resolved]

NARRATIVE: CASE EVENT DATE: 20250516
